FAERS Safety Report 5960922-7 (Version None)
Quarter: 2008Q4

REPORT INFORMATION
  Report Type: 
  Country: None (occurrence: None)
  Receive Date: 20081119
  Receipt Date: 20081107
  Transmission Date: 20090506
  Serious: Yes (Other)
  Sender: FDA-Public Use
  Company Number: ACO_00487_2008

PATIENT
  Age: 53 Year
  Sex: Female
  Weight: 59.8748 kg

DRUGS (6)
  1. ZANAFLEX [Suspect]
     Indication: MUSCLE SPASMS
     Dosage: ( 8 MG TID ORAL)
     Route: 048
     Dates: start: 20080501, end: 20081001
  2. ZANAFLEX [Suspect]
     Indication: MUSCLE SPASMS
     Dosage: (8 MG BID ORAL)
     Route: 048
     Dates: start: 20081001
  3. CIPROFLOXACIN [Suspect]
     Indication: URINARY TRACT INFECTION
     Dosage: (500 MG BID, ^OFF AND ON^ ORAL), (500 MG TID ORAL)
     Route: 048
     Dates: start: 20080501, end: 20080101
  4. CIPROFLOXACIN [Suspect]
     Indication: URINARY TRACT INFECTION
     Dosage: (500 MG BID, ^OFF AND ON^ ORAL), (500 MG TID ORAL)
     Route: 048
     Dates: start: 20080101
  5. FENTANYL [Concomitant]
  6. PERCOCET [Concomitant]

REACTIONS (7)
  - DYSARTHRIA [None]
  - DYSSTASIA [None]
  - FEELING ABNORMAL [None]
  - HALLUCINATION [None]
  - HYPOTENSION [None]
  - RECTAL HAEMORRHAGE [None]
  - URINARY TRACT INFECTION [None]
